FAERS Safety Report 5333346-3 (Version None)
Quarter: 2007Q2

REPORT INFORMATION
  Report Type: 
  Country: None (occurrence: None)
  Receive Date: 20070524
  Receipt Date: 20070516
  Transmission Date: 20071010
  Serious: Yes (Hospitalization)
  Sender: FDA-Public Use
  Company Number: FR-ELI_LILLY_AND_COMPANY-FR200705005052

PATIENT
  Age: 70 Year
  Sex: Female

DRUGS (4)
  1. FORTEO [Suspect]
     Indication: OSTEOPOROSIS
     Dosage: 20 UG, DAILY (1/D)
     Route: 058
     Dates: start: 20070221
  2. INSULIN [Concomitant]
     Dosage: 2 D/F, DAILY (1/D)
  3. FIXICAL D3 [Concomitant]
  4. ANALGESICS [Concomitant]

REACTIONS (2)
  - ANKLE FRACTURE [None]
  - FALL [None]
